FAERS Safety Report 4433698-2 (Version None)
Quarter: 2004Q3

REPORT INFORMATION
  Report Type: 
  Country: None (occurrence: None)
  Receive Date: 20040824
  Receipt Date: 20040811
  Transmission Date: 20050211
  Serious: Yes (Other)
  Sender: FDA-Public Use
  Company Number: 2004055197

PATIENT
  Age: 78 Year
  Sex: Female
  Weight: 53.5244 kg

DRUGS (4)
  1. BENADRYL [Suspect]
     Indication: SLEEP DISORDER
     Dosage: 1-2 ULTRATABS ON AND OFF, ORAL
     Route: 048
     Dates: start: 19940101
  2. ATENOLOL [Concomitant]
  3. TELMISARTAN (TELMISARTAN) [Concomitant]
  4. ALDACTAZIDE A (HYDROCHLOROTHIAZIDE, SPIRONOLACTONE) [Concomitant]

REACTIONS (1)
  - GLAUCOMA [None]
